FAERS Safety Report 17775824 (Version 1)
Quarter: 2020Q2

REPORT INFORMATION
  Report Type: Spontaneous
  Country: DE (occurrence: DE)
  Receive Date: 20200513
  Receipt Date: 20200513
  Transmission Date: 20200714
  Serious: Yes (Other)
  Sender: FDA-Public Use
  Company Number: DE-TEVA-2020-DE-1233496

PATIENT
  Age: 79 Year
  Sex: Female

DRUGS (11)
  1. BISOPROLOL ABZ 5 MG TABLETTEN [Concomitant]
     Active Substance: BISOPROLOL
     Dosage: 10 MILLIGRAM DAILY; 1-0-1, REGULARLY
  2. NEPHROTRANS 840MG [Concomitant]
     Dosage: 2520 MILLIGRAM DAILY; 1-1-1, REGULARLY
  3. LIXIANA 30 MG [Concomitant]
     Dosage: 30 MILLIGRAM DAILY; 0-0-1, REGULARLY
  4. ZOLPIDEM AL 10 MG FILMTABLETTEN [Concomitant]
     Dosage: 10 MILLIGRAM DAILY; 0-0-1, REGULARLY
  5. L-THYROXIN 125 MCG HENNING [Concomitant]
     Dosage: 125 MICROGRAM DAILY; 1-0-0, REGULARLY
  6. MIRTAZAPIN HEUMANN 15 MG HEUNET [Concomitant]
     Dosage: 15 MILLIGRAM DAILY; 0-0-1, REGULARLY
  7. CETIRIZIN ABZ 10 MG FILMTABLETTEN [Suspect]
     Active Substance: CETIRIZINE HYDROCHLORIDE
     Indication: NASAL CONGESTION
  8. AMLODIPIN DEXCEL 5 MG [Concomitant]
     Dosage: 10 MILLIGRAM DAILY; 1-0-1, REGULARLY
  9. RAMIPRIL - 1 A PHARMA 5 MG TABLETTEN [Concomitant]
     Active Substance: RAMIPRIL
     Dosage: 10 MILLIGRAM DAILY; 1-0-1, REGULARLY
  10. CETIRIZIN ABZ 10 MG FILMTABLETTEN [Suspect]
     Active Substance: CETIRIZINE HYDROCHLORIDE
     Indication: URTICARIA
     Dosage: 10MG REGULARLY
     Route: 048
  11. FUROSEMID ABZ 40 MG TABLETTEN [Concomitant]
     Dosage: 200MG, 3-2-0, REGULARLY

REACTIONS (3)
  - Mobility decreased [Recovered/Resolved]
  - Altered state of consciousness [Recovered/Resolved]
  - Urinary incontinence [Recovered/Resolved]

NARRATIVE: CASE EVENT DATE: 202002
